FAERS Safety Report 22714301 (Version 3)
Quarter: 2025Q1

REPORT INFORMATION
  Report Type: Report from Study
  Country: US (occurrence: US)
  Receive Date: 20230718
  Receipt Date: 20250123
  Transmission Date: 20250408
  Serious: Yes (Other)
  Sender: NOVARTIS
  Company Number: US-002147023-NVSC2023US157226

PATIENT
  Sex: Male

DRUGS (1)
  1. ENTRESTO [Suspect]
     Active Substance: SACUBITRIL\VALSARTAN
     Indication: Product used for unknown indication
     Route: 065

REACTIONS (4)
  - Internal haemorrhage [Unknown]
  - Mesothelioma [Unknown]
  - Red blood cell count decreased [Unknown]
  - Exposure to chemical pollution [Unknown]
